FAERS Safety Report 5937124-3 (Version None)
Quarter: 2008Q4

REPORT INFORMATION
  Report Type: 
  Country: None (occurrence: None)
  Receive Date: 20081031
  Receipt Date: 20081023
  Transmission Date: 20090506
  Serious: Yes (Other)
  Sender: FDA-Public Use
  Company Number: PHHY2008GB26318

PATIENT

DRUGS (1)
  1. DESFERAL [Suspect]

REACTIONS (2)
  - DIALYSIS [None]
  - RENAL FAILURE [None]
